FAERS Safety Report 6394839-3 (Version None)
Quarter: 2009Q4

REPORT INFORMATION
  Report Type: 
  Country: None (occurrence: None)
  Receive Date: 20091009
  Receipt Date: 20080530
  Transmission Date: 20100525
  Serious: Yes (Death, Other)
  Sender: FDA-Public Use
  Company Number: IS-BAYER-200818327GPV

PATIENT

DRUGS (13)
  1. ZEVALIN [Suspect]
     Indication: NON-HODGKIN'S LYMPHOMA
     Dosage: 0.4 MCI/KG CAPPED AT32 MCI AND  GIVEN ON DAY -14
     Route: 065
  2. YTRACIS [Suspect]
     Indication: NON-HODGKIN'S LYMPHOMA
     Route: 065
  3. RITUXIMAB [Suspect]
     Indication: NON-HODGKIN'S LYMPHOMA
     Dosage: GIVEN ON DAY -14
     Route: 065
  4. FLUDARABINE [Suspect]
     Indication: NON-HODGKIN'S LYMPHOMA
     Dosage: 30 MG/M2 REDUCED-INTENSITY CONDITIONING ON DAYS -6 TO -2
     Route: 065
  5. MELPHALAN [Suspect]
     Indication: NON-HODGKIN'S LYMPHOMA
     Dosage: 50-70 MG/M2 ON DAYS -3 TO -2
     Route: 065
  6. BUSULFAN [Suspect]
     Indication: NON-HODGKIN'S LYMPHOMA
     Dosage: 3.2 MG/KG/D ON DAYS -4 TO -3
     Route: 065
  7. ANTITHYMOCYTE GLOBULIN [Concomitant]
     Route: 065
  8. PHENYTOIN [Concomitant]
     Dosage: ADMINISTERED FROM THE DAY BEFORE AND UNTIL  24 H AFTER THE COMPLETION OF BUSULFAN INFUSION
     Route: 065
  9. CYCLOSPORINE [Concomitant]
     Indication: PROPHYLAXIS AGAINST GRAFT VERSUS HOST DISEASE
     Dosage: ADMINISTERED FOR 3 MONTHS  AND TAPERED AFTER IN PATIENTS WITH NO ACTIVE GVH
     Route: 065
  10. METHOTREXATE [Concomitant]
     Indication: PROPHYLAXIS AGAINST GRAFT VERSUS HOST DISEASE
     Dosage: 10 MG/M2/D ON DAY +3 AND +6,  FOR 3 MONTHS AND TAPERED AFTER IN PATIENTS WITH NO ACTIVE GVH
     Route: 065
  11. METHOTREXATE [Concomitant]
     Dosage: 15 MG/M2/D ON DAY +1
     Route: 065
  12. NEUPOGEN [Concomitant]
     Dosage: ADMINISTERED FROM DAY +7 UNTIL ENGRAFTMENT
     Route: 065
  13. ANTIBIOTICS [Concomitant]
     Indication: INFECTION PROPHYLAXIS
     Route: 065

REACTIONS (9)
  - ACUTE GRAFT VERSUS HOST DISEASE [None]
  - ACUTE GRAFT VERSUS HOST DISEASE IN INTESTINE [None]
  - ACUTE GRAFT VERSUS HOST DISEASE IN LIVER [None]
  - ACUTE GRAFT VERSUS HOST DISEASE IN SKIN [None]
  - CHRONIC GRAFT VERSUS HOST DISEASE [None]
  - METABOLIC ENCEPHALOPATHY [None]
  - MUCOSAL INFLAMMATION [None]
  - MULTI-ORGAN FAILURE [None]
  - RENAL FAILURE ACUTE [None]
